FAERS Safety Report 6886797-X (Version None)
Quarter: 2010Q3

REPORT INFORMATION
  Report Type: 
  Country: None (occurrence: None)
  Receive Date: 20100730
  Receipt Date: 20100720
  Transmission Date: 20110219
  Serious: Yes (Other)
  Sender: FDA-Public Use
  Company Number: US-PFIZER INC-2010091433

PATIENT
  Sex: Female
  Weight: 79.9 kg

DRUGS (1)
  1. CADUET [Suspect]
     Indication: HYPERTENSION
     Dosage: [AMLODIPINE 5MG]/[ATORVASTATIN 20MG], DAILY
     Route: 048
     Dates: start: 20091201, end: 20100715

REACTIONS (2)
  - DYSPHONIA [None]
  - SKIN EXFOLIATION [None]
